FAERS Safety Report 9879628 (Version 1)
Quarter: 2014Q1

REPORT INFORMATION
  Report Type: Spontaneous
  Country: AE (occurrence: AE)
  Receive Date: 20140206
  Receipt Date: 20140206
  Transmission Date: 20141002
  Serious: Yes (Other)
  Sender: FDA-Public Use
  Company Number: CHNY2014AE000711

PATIENT
  Sex: Male
  Weight: 90 kg

DRUGS (2)
  1. OTRIVIN [Suspect]
     Indication: NASAL CONGESTION
     Dosage: UNK, QID
     Route: 045
  2. OTRIVIN MENTHOL [Suspect]
     Indication: NASAL CONGESTION
     Dosage: UNK, QID
     Route: 045

REACTIONS (8)
  - Drug dependence [Unknown]
  - Gastric ulcer [Unknown]
  - Irritable bowel syndrome [Unknown]
  - Rhinitis [Unknown]
  - Oropharyngeal pain [Unknown]
  - Mental disorder [Unknown]
  - Poor quality sleep [Unknown]
  - Drug ineffective [Unknown]
